FAERS Safety Report 7179678-8 (Version None)
Quarter: 2010Q4

REPORT INFORMATION
  Report Type: 
  Country: None (occurrence: None)
  Receive Date: 20101221
  Receipt Date: 20101208
  Transmission Date: 20110411
  Serious: Yes (Other)
  Sender: FDA-Public Use
  Company Number: US-ROCHE-727315

PATIENT
  Sex: Female
  Weight: 65.8 kg

DRUGS (4)
  1. ACCUTANE [Suspect]
     Indication: ACNE
     Route: 065
     Dates: start: 19980801, end: 19990201
  2. ACCUTANE [Suspect]
     Route: 065
     Dates: start: 20000201, end: 20000601
  3. ACCUTANE [Suspect]
     Route: 065
     Dates: start: 20001201, end: 20010401
  4. YASMIN [Concomitant]

REACTIONS (5)
  - ANAL FISSURE [None]
  - CROHN'S DISEASE [None]
  - GASTROINTESTINAL INJURY [None]
  - PROCTITIS [None]
  - RHINITIS ALLERGIC [None]
